FAERS Safety Report 13121541 (Version 1)
Quarter: 2017Q1

REPORT INFORMATION
  Report Type: Spontaneous
  Country: US (occurrence: US)
  Receive Date: 20170117
  Receipt Date: 20170117
  Transmission Date: 20170428
  Serious: No
  Sender: FDA-Public Use
  Company Number: US-GLAXOSMITHKLINE-US2017004142

PATIENT
  Sex: Female

DRUGS (1)
  1. NICODERM CQ [Suspect]
     Active Substance: NICOTINE
     Indication: INSOMNIA
     Dosage: UNK
     Dates: start: 20170110, end: 20170110

REACTIONS (4)
  - Dizziness [Unknown]
  - Nausea [Unknown]
  - Product use issue [Unknown]
  - Application site rash [Unknown]

NARRATIVE: CASE EVENT DATE: 20170110
